FAERS Safety Report 19106794 (Version 1)
Quarter: 2021Q2

REPORT INFORMATION
  Report Type: Spontaneous
  Country: CA (occurrence: CA)
  Receive Date: 20210407
  Receipt Date: 20210407
  Transmission Date: 20210717
  Serious: Yes (Hospitalization)
  Sender: FDA-Public Use
  Company Number: None

PATIENT
  Age: 36 Year
  Sex: Female
  Weight: 48.15 kg

DRUGS (10)
  1. CYCLOBENZAPRINE 10MG [Concomitant]
     Active Substance: CYCLOBENZAPRINE
  2. DIAZEPAM 5MG [Concomitant]
     Active Substance: DIAZEPAM
  3. LORAZEPAM 1MG PRN [Concomitant]
  4. CODEINE 30MG [Concomitant]
  5. ZOPICLONE 7.5MG [Concomitant]
     Active Substance: ZOPICLONE
  6. SERTRALINE [Concomitant]
     Active Substance: SERTRALINE HYDROCHLORIDE
  7. TYLENOL WITH CODEINE [Concomitant]
     Active Substance: ACETAMINOPHEN\CODEINE PHOSPHATE
  8. QUETIAPINE. [Concomitant]
     Active Substance: QUETIAPINE
  9. PANTOPRAZOLE 40MG [Concomitant]
     Active Substance: PANTOPRAZOLE SODIUM
  10. BREO ELLIPTA [Suspect]
     Active Substance: FLUTICASONE FUROATE\VILANTEROL TRIFENATATE
     Indication: PNEUMONIA
     Dosage: ?          QUANTITY:14 PUFF(S);?
     Route: 055
     Dates: start: 20210327, end: 20210330

REACTIONS (4)
  - Heart rate increased [None]
  - Head discomfort [None]
  - Loss of consciousness [None]
  - Fall [None]

NARRATIVE: CASE EVENT DATE: 20210330
